FAERS Safety Report 7826728-9 (Version None)
Quarter: 2011Q4

REPORT INFORMATION
  Report Type: 
  Country: None (occurrence: None)
  Receive Date: 20111018
  Receipt Date: 20111003
  Transmission Date: 20120403
  Serious: Yes (Death, Hospitalization, Other)
  Sender: FDA-Public Use
  Company Number: 010291

PATIENT
  Age: 30 Year
  Sex: Male

DRUGS (3)
  1. BUSULFAN [Suspect]
     Dosage: 2 MG MILLIGRAM(S), QID, ORAL
     Route: 048
  2. CYCLOSPORINE [Concomitant]
  3. CYCLOPHOSPHAMIDE [Concomitant]

REACTIONS (17)
  - CHRONIC GRAFT VERSUS HOST DISEASE [None]
  - SURGICAL PROCEDURE REPEATED [None]
  - GRAND MAL CONVULSION [None]
  - ACUTE LYMPHOCYTIC LEUKAEMIA RECURRENT [None]
  - HYPOALBUMINAEMIA [None]
  - HYPOPROTEINAEMIA [None]
  - ALANINE AMINOTRANSFERASE INCREASED [None]
  - NEPHROTIC SYNDROME [None]
  - ASPARTATE AMINOTRANSFERASE INCREASED [None]
  - ENCEPHALITIS VIRAL [None]
  - HYPERTRIGLYCERIDAEMIA [None]
  - CACHEXIA [None]
  - STEM CELL TRANSPLANT [None]
  - GAMMA-GLUTAMYLTRANSFERASE INCREASED [None]
  - RED BLOOD CELL SEDIMENTATION RATE INCREASED [None]
  - KIDNEY FIBROSIS [None]
  - HYPERCHOLESTEROLAEMIA [None]
